FAERS Safety Report 10073365 (Version 2)
Quarter: 2014Q2

REPORT INFORMATION
  Report Type: Report from Study
  Country: BR (occurrence: BR)
  Receive Date: 20140411
  Receipt Date: 20140414
  Transmission Date: 20141212
  Serious: Yes (Other)
  Sender: FDA-Public Use
  Company Number: PHHY2014BR041396

PATIENT
  Age: 73 Year
  Sex: Male
  Weight: 61 kg

DRUGS (6)
  1. FORASEQ [Suspect]
     Indication: ASTHMA
     Dosage: 12/400 BID
     Route: 055
     Dates: start: 20050715
  2. FORASEQ [Suspect]
     Dosage: UNK (WITHDRAWAL OF FORMOTEROL (12MCG), MAINTAINING ONLY CAPSULES OF BUDESONIDE (400MCG)
  3. FORASEQ [Suspect]
     Dosage: 12/400 MCG
  4. SALBUTAMOL [Concomitant]
     Dosage: UNK UKN, UNK
  5. AAS [Concomitant]
     Indication: PROPHYLAXIS
     Dosage: 200 MG, UNK
  6. ENALAPRIL [Concomitant]
     Indication: HYPERTENSION
     Dosage: 10 MG, BID
     Dates: start: 1995

REACTIONS (9)
  - Coronary artery disease [Unknown]
  - Aortic disorder [Unknown]
  - Systolic dysfunction [Unknown]
  - Myocardial ischaemia [Unknown]
  - Chest pain [Unknown]
  - Coronary artery occlusion [Unknown]
  - Dyspnoea [Recovering/Resolving]
  - Chest discomfort [Unknown]
  - Wrong technique in drug usage process [Unknown]
